FAERS Safety Report 15668992 (Version 1)
Quarter: 2018Q4

REPORT INFORMATION
  Report Type: Spontaneous
  Country: US (occurrence: US)
  Receive Date: 20181129
  Receipt Date: 20181129
  Transmission Date: 20190205
  Serious: No
  Sender: FDA-Public Use
  Company Number: US-IPSEN BIOPHARMACEUTICALS, INC.-2018-17951

PATIENT
  Age: 48 Year
  Sex: Female

DRUGS (6)
  1. DYSPORT [Suspect]
     Active Substance: ABOBOTULINUMTOXINA
     Indication: SKIN WRINKLING
  2. DYSPORT [Suspect]
     Active Substance: ABOBOTULINUMTOXINA
     Indication: OFF LABEL USE
  3. DYSPORT [Suspect]
     Active Substance: ABOBOTULINUMTOXINA
     Indication: SKIN WRINKLING
     Dosage: 30 UNITS ABOVE EACH BROW AREA ( SHE CALLED FOREHEAD AREA AS WELL), 30 UNITS IN EACH CROWS FEET AREA.
     Dates: start: 20181109, end: 20181109
  4. DYSPORT [Suspect]
     Active Substance: ABOBOTULINUMTOXINA
     Indication: SKIN WRINKLING
  5. SYNTHROID [Concomitant]
     Active Substance: LEVOTHYROXINE SODIUM
     Indication: AUTOIMMUNE THYROIDITIS
     Dosage: NOT REPORTED
     Dates: start: 2013
  6. BOTOX [Concomitant]
     Active Substance: ONABOTULINUMTOXINA
     Dosage: NOT REPORTED

REACTIONS (9)
  - Malaise [Recovered/Resolved]
  - Eyelid ptosis [Unknown]
  - Intentional product use issue [Unknown]
  - Eyelid margin crusting [Recovered/Resolved]
  - Impaired driving ability [Unknown]
  - Overdose [Unknown]
  - Influenza like illness [Recovered/Resolved]
  - Eyelid ptosis [Unknown]
  - Eyelid disorder [Not Recovered/Not Resolved]

NARRATIVE: CASE EVENT DATE: 20181110
